FAERS Safety Report 16534960 (Version 2)
Quarter: 2019Q3

REPORT INFORMATION
  Report Type: Spontaneous
  Country: US (occurrence: US)
  Receive Date: 20190705
  Receipt Date: 20190813
  Transmission Date: 20191004
  Serious: Yes (Other)
  Sender: FDA-Public Use
  Company Number: US-NOVOPROD-670656

PATIENT
  Age: 64 Year
  Sex: Female

DRUGS (4)
  1. GLIMEPIRIDE. [Concomitant]
     Active Substance: GLIMEPIRIDE
     Indication: PRODUCT USED FOR UNKNOWN INDICATION
     Dosage: 2 MG, BID
     Dates: end: 2019
  2. LORAZEPAM. [Concomitant]
     Active Substance: LORAZEPAM
     Indication: PRODUCT USED FOR UNKNOWN INDICATION
     Dosage: 1 MG, PRN
  3. OZEMPIC [Suspect]
     Active Substance: SEMAGLUTIDE
     Indication: TYPE 2 DIABETES MELLITUS
     Dosage: UNK
     Route: 058
     Dates: start: 2019, end: 2019
  4. METFORMIN [Suspect]
     Active Substance: METFORMIN HYDROCHLORIDE
     Indication: PRODUCT USED FOR UNKNOWN INDICATION
     Dosage: UNK
     Dates: end: 2019

REACTIONS (3)
  - Rash erythematous [Recovered/Resolved]
  - Rash maculo-papular [Recovered/Resolved]
  - Food allergy [Unknown]

NARRATIVE: CASE EVENT DATE: 2019
